FAERS Safety Report 6865179-0 (Version None)
Quarter: 2010Q3

REPORT INFORMATION
  Report Type: 
  Country: None (occurrence: None)
  Receive Date: 20100721
  Receipt Date: 20080417
  Transmission Date: 20110219
  Serious: No
  Sender: FDA-Public Use
  Company Number: US-PFIZER INC-2008036647

PATIENT
  Sex: Female
  Weight: 76.2 kg

DRUGS (12)
  1. CHANTIX [Suspect]
     Indication: SMOKING CESSATION THERAPY
     Dates: start: 20080317, end: 20080416
  2. ALLEGRA [Concomitant]
  3. PREVACID [Concomitant]
  4. IRON [Concomitant]
  5. METFORMIN [Concomitant]
  6. VITAMINS [Concomitant]
  7. AZULFIDINE [Concomitant]
  8. TOPROL-XL [Concomitant]
  9. GLUCOTROL [Concomitant]
  10. ADVAIR DISKUS 100/50 [Concomitant]
  11. FLONASE [Concomitant]
  12. ALBUTEROL [Concomitant]

REACTIONS (3)
  - DEPRESSION [None]
  - HYPERSOMNIA [None]
  - THERAPEUTIC RESPONSE UNEXPECTED [None]
